FAERS Safety Report 4302510-4 (Version None)
Quarter: 2004Q1

REPORT INFORMATION
  Report Type: 
  Country: None (occurrence: None)
  Receive Date: 20040217
  Receipt Date: 20031117
  Transmission Date: 20041129
  Serious: Yes (Hospitalization)
  Sender: FDA-Public Use
  Company Number: 200310437BBE

PATIENT
  Age: 65 Year
  Sex: Female

DRUGS (1)
  1. BAYTET [Suspect]
     Indication: IMMUNISATION
     Dosage: 1 ML, ONCE, INTRAMUSCULAR
     Route: 030
     Dates: start: 20030826

REACTIONS (1)
  - PYELONEPHRITIS [None]
